FAERS Safety Report 6293389-2 (Version None)
Quarter: 2009Q3

REPORT INFORMATION
  Report Type: 
  Country: None (occurrence: None)
  Receive Date: 20090731
  Receipt Date: 20090724
  Transmission Date: 20100115
  Serious: Yes (Hospitalization)
  Sender: FDA-Public Use
  Company Number: BE-AMGEN-UK352727

PATIENT
  Age: 38 Year
  Sex: Male

DRUGS (6)
  1. VECTIBIX [Suspect]
     Indication: COLORECTAL CANCER
     Route: 042
     Dates: start: 20090406, end: 20090619
  2. CODEINE SUL TAB [Concomitant]
     Route: 048
     Dates: start: 20090509
  3. METHADONE HCL [Concomitant]
     Route: 048
     Dates: start: 20080101
  4. VOLTAREN [Concomitant]
     Route: 042
     Dates: start: 20080101
  5. CYMBALTA [Concomitant]
     Route: 048
     Dates: start: 20080101
  6. XYZAL [Concomitant]

REACTIONS (1)
  - BLOOD AMYLASE INCREASED [None]
